FAERS Safety Report 17206115 (Version 1)
Quarter: 2020Q1

REPORT INFORMATION
  Report Type: Spontaneous
  Country: US (occurrence: US)
  Receive Date: 20191226
  Receipt Date: 20191226
  Transmission Date: 20200409
  Serious: Yes (Other)
  Sender: FDA-Public Use
  Company Number: None

PATIENT
  Age: 48 Year
  Sex: Female
  Weight: 72 kg

DRUGS (8)
  1. BUPROPION 450MG [Concomitant]
  2. TOPIRAMATE 50MG [Concomitant]
     Active Substance: TOPIRAMATE
  3. OMEPRAZOLE 20MG [Concomitant]
     Active Substance: OMEPRAZOLE
  4. SUMATRIPTAN 100MG PRN [Concomitant]
  5. MODAFINIL 100MG [Concomitant]
     Active Substance: MODAFINIL
  6. LORAZEPAM 0.5MG TABLETS [Suspect]
     Active Substance: LORAZEPAM
     Indication: ANXIETY
     Dosage: ?          QUANTITY:1 TABLET(S);?
     Route: 048
  7. LAMICTAL 150 [Concomitant]
  8. GENERIC RELPAX 40MG PRN [Concomitant]

REACTIONS (2)
  - Product quality issue [None]
  - Product physical issue [None]

NARRATIVE: CASE EVENT DATE: 20190701
